FAERS Safety Report 5044850-X (Version None)
Quarter: 2006Q2

REPORT INFORMATION
  Report Type: 
  Country: None (occurrence: None)
  Receive Date: 20060601
  Receipt Date: 20060327
  Transmission Date: 20061013
  Serious: No
  Sender: FDA-Public Use
  Company Number: 2006-BP-02467BP

PATIENT
  Age: 82 Year
  Sex: Male

DRUGS (12)
  1. SPIRIVA [Suspect]
     Indication: CHRONIC OBSTRUCTIVE PULMONARY DISEASE
     Dosage: 18 MG (18 MG, 1 IN 1 D), IH
     Route: 055
     Dates: start: 20050101
  2. SPIRIVA [Suspect]
     Indication: EXPOSURE TO CHEMICAL POLLUTION
     Dosage: 18 MG (18 MG, 1 IN 1 D), IH
     Route: 055
     Dates: start: 20050101
  3. SPIRIVA [Suspect]
  4. ALBUTEROL [Concomitant]
  5. ASPIRIN TAB [Concomitant]
  6. DILTIAZEM [Concomitant]
  7. DIGOXIN [Concomitant]
  8. GLIPIZIDE [Concomitant]
  9. POTASSIUM CHLORIDE [Concomitant]
  10. FUROSEMIDE [Concomitant]
  11. SIMVASTATIN [Concomitant]
  12. FLONASE [Concomitant]

REACTIONS (2)
  - DYSPNOEA [None]
  - FEELING ABNORMAL [None]
